FAERS Safety Report 23080813 (Version 2)
Quarter: 2024Q1

REPORT INFORMATION
  Report Type: Spontaneous
  Country: US (occurrence: US)
  Receive Date: 20231018
  Receipt Date: 20240102
  Transmission Date: 20240410
  Serious: No
  Sender: FDA-Public Use
  Company Number: US-PFIZER INC-202300331844

PATIENT
  Age: 16 Year
  Sex: Female
  Weight: 63.946 kg

DRUGS (1)
  1. DEMEROL [Suspect]
     Active Substance: MEPERIDINE HYDROCHLORIDE
     Indication: Surgery
     Dosage: UNK
     Dates: start: 1979, end: 1979

REACTIONS (2)
  - Drug hypersensitivity [Recovered/Resolved]
  - Nausea [Recovered/Resolved]

NARRATIVE: CASE EVENT DATE: 19790101
